FAERS Safety Report 5200767-9 (Version None)
Quarter: 2006Q4

REPORT INFORMATION
  Report Type: 
  Country: None (occurrence: None)
  Receive Date: 20061016
  Receipt Date: 20060710
  Transmission Date: 20070319
  Serious: No
  Sender: FDA-Public Use
  Company Number: 2006SP002652

PATIENT
  Age: 63 Year
  Sex: Male
  Weight: 63.5036 kg

DRUGS (2)
  1. LUNESTA [Suspect]
     Indication: INSOMNIA
     Dosage: 3 MG, ORAL
     Route: 048
     Dates: start: 20060501, end: 20060501
  2. VYTORIN [Concomitant]

REACTIONS (1)
  - DYSGEUSIA [None]
